FAERS Safety Report 9260344 (Version 2)
Quarter: 2013Q2

REPORT INFORMATION
  Report Type: Report from Study
  Country: BR (occurrence: BR)
  Receive Date: 20130429
  Receipt Date: 20130523
  Transmission Date: 20140414
  Serious: Yes (Death)
  Sender: FDA-Public Use
  Company Number: PHHY2013BR041119

PATIENT
  Sex: Female
  Weight: 77 kg

DRUGS (4)
  1. ZELMAC [Suspect]
     Dosage: 6 MG, UNK
  2. DIOVAN AMLO FIX [Suspect]
     Dosage: 320/5 MG
  3. DIOVAN AMLO FIX [Suspect]
     Dosage: 80/5 MG
  4. DIOVAN [Suspect]
     Dosage: 80 MG, UNK

REACTIONS (3)
  - Breast cancer [Fatal]
  - Lung neoplasm malignant [Fatal]
  - Diabetes mellitus [Fatal]
